FAERS Safety Report 8885729 (Version 1)
Quarter: 2012Q4

REPORT INFORMATION
  Report Type: 
  Country: US (occurrence: US)
  Receive Date: 20121102
  Receipt Date: 20121102
  Transmission Date: 20130627
  Serious: Yes (Hospitalization)
  Sender: FDA-Public Use
  Company Number: US-PFIZER INC-2012271460

PATIENT
  Age: 56 Year
  Sex: Male
  Weight: 77.55 kg

DRUGS (2)
  1. REVATIO [Suspect]
     Indication: PULMONARY ARTERIAL HYPERTENSION
     Dosage: 20 mg, 3x/day
     Route: 048
     Dates: start: 201208
  2. WARFARIN SODIUM [Concomitant]
     Dosage: UNK

REACTIONS (1)
  - Toxicity to various agents [Unknown]
